FAERS Safety Report 8546726-X (Version None)
Quarter: 2012Q3

REPORT INFORMATION
  Report Type: 
  Country: None (occurrence: None)
  Receive Date: 20120727
  Receipt Date: 20120131
  Transmission Date: 20120928
  Serious: No
  Sender: FDA-Public Use
  Company Number: US-ASTRAZENECA-2012SE06812

PATIENT
  Age: 49 Year
  Sex: Male
  Weight: 69.4 kg

DRUGS (6)
  1. SEROQUEL XR [Suspect]
     Route: 048
  2. SEROQUEL XR [Suspect]
     Indication: ATTENTION DEFICIT/HYPERACTIVITY DISORDER
     Route: 048
  3. WELLBUTRIN [Concomitant]
     Indication: ATTENTION DEFICIT/HYPERACTIVITY DISORDER
  4. SEROQUEL XR [Suspect]
     Route: 048
  5. SEROQUEL XR [Suspect]
     Indication: DEPRESSION
     Route: 048
  6. WELLBUTRIN [Concomitant]
     Indication: DEPRESSION

REACTIONS (4)
  - DEPRESSION [None]
  - FEELING ABNORMAL [None]
  - DRUG DOSE OMISSION [None]
  - MOOD SWINGS [None]
